FAERS Safety Report 5688788-3 (Version None)
Quarter: 2008Q1

REPORT INFORMATION
  Report Type: 
  Country: None (occurrence: None)
  Receive Date: 20080331
  Receipt Date: 20080317
  Transmission Date: 20080703
  Serious: Yes (Hospitalization)
  Sender: FDA-Public Use
  Company Number: FR-ROCHE-553794

PATIENT
  Age: 53 Year
  Sex: Male

DRUGS (2)
  1. RIVOTRIL [Suspect]
     Indication: SPINAL DISORDER
     Route: 065
  2. RIVOTRIL [Suspect]
     Route: 065

REACTIONS (5)
  - DRUG DEPENDENCE [None]
  - INSOMNIA [None]
  - IRRITABILITY [None]
  - PANCREATIC DISORDER [None]
  - WEANING FAILURE [None]
